FAERS Safety Report 15731315 (Version 10)
Quarter: 2019Q3

REPORT INFORMATION
  Report Type: Report from Study
  Country: CA (occurrence: CA)
  Receive Date: 20181217
  Receipt Date: 20190913
  Transmission Date: 20191004
  Serious: Yes (Hospitalization)
  Sender: FDA-Public Use
  Company Number: CA-HLSUS-2018-CA-001856

PATIENT
  Age: 49 Year
  Sex: Male

DRUGS (32)
  1. CLOZARIL [Suspect]
     Active Substance: CLOZAPINE
     Dosage: 250 MG
     Route: 048
     Dates: start: 20120319, end: 20190308
  2. TRANDATE [Concomitant]
     Active Substance: LABETALOL HYDROCHLORIDE
     Dosage: 200 MG
     Route: 048
  3. CENTRUM FORTE [Concomitant]
     Dosage: 1 TAB
     Route: 048
  4. PARIET [Concomitant]
     Active Substance: RABEPRAZOLE SODIUM
     Dosage: 20 MG DAILY
     Route: 048
  5. SYNTHROID [Concomitant]
     Active Substance: LEVOTHYROXINE SODIUM
     Dosage: 100 MCG
     Route: 048
  6. NICODERM CQ [Concomitant]
     Active Substance: NICOTINE
  7. SODIUM BICARBONATE. [Concomitant]
     Active Substance: SODIUM BICARBONATE
     Dosage: 100 MG DAILY
     Route: 048
  8. COLACE [Concomitant]
     Active Substance: DOCUSATE SODIUM
  9. ASA EC [Concomitant]
     Active Substance: ASPIRIN
  10. ATIVAN [Concomitant]
     Active Substance: LORAZEPAM
     Dosage: 1 MG AT BEDTIME
     Route: 048
  11. KEPPRA [Concomitant]
     Active Substance: LEVETIRACETAM
     Dosage: 1000 MG BID
     Route: 048
  12. LAX-A-DAY [Concomitant]
     Dosage: 17 G BID
     Route: 048
  13. CRESTOR [Concomitant]
     Active Substance: ROSUVASTATIN CALCIUM
     Dosage: 20 MG
  14. EPIVAL [Concomitant]
     Active Substance: DIVALPROEX SODIUM
     Dosage: 500 MG BID
     Route: 048
  15. LACTULOSE. [Concomitant]
     Active Substance: LACTULOSE
     Dosage: 30 ML BID
     Route: 048
  16. CLOPIXOL DEPOT [Concomitant]
     Active Substance: ZUCLOPENTHIXOL
     Dosage: 100 MG EVERY 14 DAYS SCH
     Route: 030
  17. TYLENOL [Concomitant]
     Active Substance: ACETAMINOPHEN
  18. ROCALTROL [Concomitant]
     Active Substance: CALCITRIOL
     Dosage: 0.25 MG
     Route: 048
  19. PANTOLOC EC [Concomitant]
     Dosage: 40 MG
     Route: 048
  20. VENTOLIN [Concomitant]
     Active Substance: ALBUTEROL SULFATE
     Dosage: 100 MCG
  21. SENNOKOT [Concomitant]
     Dosage: 8.6 MG X 2 TAB AT BEDTIME
     Route: 048
  22. HYDROMORPHONE [Concomitant]
     Active Substance: HYDROMORPHONE
  23. NORVASC [Concomitant]
     Active Substance: AMLODIPINE BESYLATE
     Dosage: 10 MG DAILY
     Route: 048
  24. PALAFER [Concomitant]
     Active Substance: FERROUS FUMARATE
     Dosage: 300 MG BEDTIME
     Route: 048
  25. ATIVAN [Concomitant]
     Active Substance: LORAZEPAM
     Dosage: 1 MG EVERY 2 HR PRN
     Route: 042
  26. IMURAN [Concomitant]
     Active Substance: AZATHIOPRINE
     Dosage: 50 MG
     Route: 048
  27. CARDURA-4 [Concomitant]
     Dosage: 8 MG BEDTIME
     Route: 048
  28. INNOHEP [Concomitant]
     Active Substance: TINZAPARIN SODIUM
     Dosage: 4500 UNIT SUBCUTANEOUS DAILY
  29. EPREX [Concomitant]
     Active Substance: ERYTHROPOIETIN
     Dosage: 4000 UNITS EVERY 14 DAYS
     Route: 058
  30. VITAMIN D [Concomitant]
     Active Substance: VITAMIN D NOS
  31. OMNARIS [Concomitant]
     Active Substance: CICLESONIDE
  32. OSCAL [Concomitant]
     Active Substance: CALCIUM CARBONATE
     Dosage: 500 MG
     Route: 048

REACTIONS (34)
  - Blood thyroid stimulating hormone increased [Unknown]
  - Haemoglobin decreased [Unknown]
  - Oxygen saturation increased [Unknown]
  - White blood cell count decreased [Not Recovered/Not Resolved]
  - Renal failure [Unknown]
  - Iron deficiency [Unknown]
  - Blood urine present [Unknown]
  - PCO2 decreased [Unknown]
  - Infection [Unknown]
  - Dyspnoea [Unknown]
  - Anion gap increased [Unknown]
  - Ischaemic stroke [Unknown]
  - Aphasia [Unknown]
  - Pyrexia [Unknown]
  - Platelet count decreased [Unknown]
  - Blood sodium decreased [Unknown]
  - Hemiparesis [Unknown]
  - Lymphocyte count decreased [Unknown]
  - Red blood cell count decreased [Unknown]
  - Blood immunoglobulin G increased [Unknown]
  - Hypophagia [Unknown]
  - Blood phosphorus increased [Unknown]
  - Haematocrit decreased [Unknown]
  - Iron binding capacity total decreased [Unknown]
  - Autoimmune disorder [Unknown]
  - Carbon dioxide decreased [Unknown]
  - Blood bicarbonate decreased [Unknown]
  - Neutropenia [Unknown]
  - Pancytopenia [Unknown]
  - Seizure [Unknown]
  - Cerebrovascular accident [Unknown]
  - Blood calcium decreased [Unknown]
  - Thrombocytosis [Unknown]
  - Malaise [Unknown]

NARRATIVE: CASE EVENT DATE: 20181203
